FAERS Safety Report 13398094 (Version 1)
Quarter: 2017Q2

REPORT INFORMATION
  Report Type: Spontaneous
  Country: US (occurrence: US)
  Receive Date: 20170403
  Receipt Date: 20170403
  Transmission Date: 20170830
  Serious: Yes (Other)
  Sender: FDA-Public Use
  Company Number: US-AKORN PHARMACEUTICALS-2017AKN00356

PATIENT
  Sex: Male
  Weight: 92.97 kg

DRUGS (1)
  1. MYORISAN [Suspect]
     Active Substance: ISOTRETINOIN
     Indication: ACNE
     Dosage: 30 MG, 2X/DAY
     Route: 048
     Dates: start: 20170110, end: 20170215

REACTIONS (3)
  - Mood altered [Recovered/Resolved]
  - Libido decreased [Recovered/Resolved]
  - Decreased interest [Recovered/Resolved]
